FAERS Safety Report 16035211 (Version 1)
Quarter: 2019Q1

REPORT INFORMATION
  Report Type: Spontaneous
  Country: US (occurrence: US)
  Receive Date: 20190305
  Receipt Date: 20190305
  Transmission Date: 20190418
  Serious: No
  Sender: FDA-Public Use
  Company Number: US-BAYER-2019-044997

PATIENT
  Sex: Female

DRUGS (5)
  1. CELEBREX [Suspect]
     Active Substance: CELECOXIB
     Dosage: 200 MG, TID
     Route: 048
  2. TYLENOL [Concomitant]
     Active Substance: ACETAMINOPHEN
     Indication: PAIN
     Dosage: 500 MG, QD
  3. ALEVE [Suspect]
     Active Substance: NAPROXEN SODIUM
  4. SOMA [Concomitant]
     Active Substance: CARISOPRODOL
     Indication: PAIN IN EXTREMITY
  5. NAPROSYN E [Suspect]
     Active Substance: NAPROXEN

REACTIONS (2)
  - Vomiting [Unknown]
  - Gastritis [Unknown]
